FAERS Safety Report 8782369 (Version 1)
Quarter: 2012Q4

REPORT INFORMATION
  Report Type: 
  Country: US (occurrence: US)
  Receive Date: 20120913
  Receipt Date: 20120913
  Transmission Date: 20130627
  Serious: Yes (Other)
  Sender: FDA-Public Use
  Company Number: CHPA2012US019624

PATIENT
  Age: 31 Year
  Sex: Female

DRUGS (1)
  1. VOLTAREN GEL [Suspect]
     Indication: INTERVERTEBRAL DISC PROTRUSION
     Dosage: less than 2 grams, ONCE/SINGLE
     Route: 061
     Dates: start: 20120906, end: 20120906

REACTIONS (5)
  - Swollen tongue [Unknown]
  - Dyspnoea [Unknown]
  - Abdominal pain upper [Unknown]
  - Off label use [Unknown]
  - Drug administered at inappropriate site [Unknown]
